FAERS Safety Report 15772449 (Version 1)
Quarter: 2018Q4

REPORT INFORMATION
  Report Type: Report from Study
  Country: US (occurrence: US)
  Receive Date: 20181228
  Receipt Date: 20181228
  Transmission Date: 20190205
  Serious: Yes (Death)
  Sender: FDA-Public Use
  Company Number: US-EXELIXIS-CABO-18017847

PATIENT
  Age: 73 Year
  Sex: Male
  Weight: 64.85 kg

DRUGS (9)
  1. PRAVASTATIN SODIUM. [Concomitant]
     Active Substance: PRAVASTATIN SODIUM
  2. PREVIDENT 5000 PLUS [Concomitant]
  3. NASONEX [Concomitant]
     Active Substance: MOMETASONE FUROATE
  4. CHEWABLE-VITE [Concomitant]
  5. FLUOROMETHOLONE. [Concomitant]
     Active Substance: FLUOROMETHOLONE
  6. MULTIVITAMINS, COMBINATIONS [Concomitant]
     Active Substance: VITAMINS
  7. CABOMETYX [Suspect]
     Active Substance: CABOZANTINIB S-MALATE
     Indication: RENAL CELL CARCINOMA
     Dosage: 20 MG, QD
     Route: 048
     Dates: start: 20180423
  8. ASTEPRO [Concomitant]
     Active Substance: AZELASTINE HYDROCHLORIDE
  9. VITAMIN B6 [Concomitant]
     Active Substance: PYRIDOXINE HYDROCHLORIDE

REACTIONS (1)
  - Death [Fatal]

NARRATIVE: CASE EVENT DATE: 20181112
